FAERS Safety Report 5606127-0 (Version None)
Quarter: 2008Q1

REPORT INFORMATION
  Report Type: 
  Country: None (occurrence: None)
  Receive Date: 20080129
  Receipt Date: 20080118
  Transmission Date: 20080703
  Serious: Yes (Other)
  Sender: FDA-Public Use
  Company Number: US-ELI_LILLY_AND_COMPANY-US200710004649

PATIENT
  Sex: Female
  Weight: 71.655 kg

DRUGS (5)
  1. EVISTA [Suspect]
     Indication: OSTEOPOROSIS
     Dosage: 60 MG, UNK
     Route: 048
     Dates: start: 20061016, end: 20070301
  2. LASIX [Concomitant]
  3. POTASSIUM CHLORIDE [Concomitant]
  4. PROPRANOLOL [Concomitant]
  5. XOPENEX [Concomitant]
     Route: 055

REACTIONS (1)
  - THROMBOPHLEBITIS [None]
